FAERS Safety Report 8227181-6 (Version None)
Quarter: 2012Q1

REPORT INFORMATION
  Report Type: 
  Country: None (occurrence: None)
  Receive Date: 20120322
  Receipt Date: 20120314
  Transmission Date: 20120608
  Serious: Yes (Other)
  Sender: FDA-Public Use
  Company Number: US-JNJFOC-20110805746

PATIENT
  Sex: Female

DRUGS (3)
  1. TOPAMAX [Suspect]
     Indication: EPILEPSY
     Route: 048
     Dates: start: 20070101, end: 20080728
  2. FOLIC ACID [Concomitant]
     Route: 065
  3. VITAMIN AND MINERAL PRENATAL SUPPLEMENT W/ FOLIC ACID CAP [Concomitant]
     Route: 065

REACTIONS (3)
  - PROLONGED PREGNANCY [None]
  - MATERNAL EXPOSURE DURING PREGNANCY [None]
  - EMOTIONAL DISORDER [None]
